FAERS Safety Report 6857902-6 (Version None)
Quarter: 2010Q3

REPORT INFORMATION
  Report Type: 
  Country: None (occurrence: None)
  Receive Date: 20100714
  Receipt Date: 20100628
  Transmission Date: 20110219
  Serious: Yes (Hospitalization)
  Sender: FDA-Public Use
  Company Number: 2010070013

PATIENT
  Age: 73 Year
  Sex: Female

DRUGS (6)
  1. TORSEMIDE [Suspect]
     Indication: OEDEMA PERIPHERAL
     Dosage: 10 MG (10 MG, 1 IN 1 D), ORAL
     Route: 048
  2. TOCILIZUMAB (ROACTEMRA) [Suspect]
     Indication: RHEUMATOID ARTHRITIS
  3. PREDNISOLONE [Suspect]
     Indication: RHEUMATOID ARTHRITIS
     Dosage: 25 MG (25 MG, 1 IN 1 D), ORAL
     Route: 048
  4. ARCOXIA [Suspect]
     Indication: RHEUMATOID ARTHRITIS
     Dosage: 90 MG (90 MG, 1 IN 1 D), ORAL
     Route: 048
  5. VITAMIN D (CALCIFEROL) [Suspect]
     Indication: OSTEOPOROSIS PROPHYLAXIS
  6. CALCIUM (CALCIUM) [Suspect]
     Indication: OSTEOPOROSIS PROPHYLAXIS

REACTIONS (1)
  - DEEP VEIN THROMBOSIS [None]
